FAERS Safety Report 4355326-7 (Version None)
Quarter: 2004Q2

REPORT INFORMATION
  Report Type: 
  Country: None (occurrence: None)
  Receive Date: 20040510
  Receipt Date: 20040426
  Transmission Date: 20050107
  Serious: Yes (Other)
  Sender: FDA-Public Use
  Company Number: US-ROCHE-365756

PATIENT
  Sex: Female

DRUGS (1)
  1. CELLCEPT [Suspect]
     Indication: DRUG USE FOR UNKNOWN INDICATION
     Route: 048

REACTIONS (11)
  - ABDOMINAL DISTENSION [None]
  - CARDIAC MURMUR [None]
  - CHEST DISCOMFORT [None]
  - HEPATIC ENZYME INCREASED [None]
  - HYPERPARATHYROIDISM [None]
  - HYPERTROPHY BREAST [None]
  - MUSCLE CRAMP [None]
  - OEDEMA [None]
  - ORTHOSTATIC HYPOTENSION [None]
  - POLYCYTHAEMIA [None]
  - TACHYCARDIA [None]
